FAERS Safety Report 25529033 (Version 1)
Quarter: 2025Q3

REPORT INFORMATION
  Report Type: Report from Study
  Country: CA (occurrence: CA)
  Receive Date: 20250708
  Receipt Date: 20250708
  Transmission Date: 20251020
  Serious: Yes (Death)
  Sender: ROCHE
  Company Number: CA-ROCHE-10000331735

PATIENT
  Age: 68 Year
  Sex: Female

DRUGS (1)
  1. VABYSMO [Suspect]
     Active Substance: FARICIMAB-SVOA
     Indication: Diabetic retinal oedema
     Dosage: DME OU MONTHLY
     Route: 050
     Dates: start: 20240207, end: 20240521

REACTIONS (1)
  - Death [Fatal]

NARRATIVE: CASE EVENT DATE: 20240521
